FAERS Safety Report 8910634 (Version 1)
Quarter: 2012Q4

REPORT INFORMATION
  Report Type: Spontaneous
  Country: None (occurrence: None)
  Receive Date: 20121107
  Receipt Date: 20121107
  Transmission Date: 20130627
  Serious: Yes (Hospitalization, Other)
  Sender: FDA-Public Use
  Company Number: AUR-APL-2012-04588

PATIENT
  Age: 33 Year
  Sex: Female

DRUGS (2)
  1. FLUOXETINE [Suspect]
     Indication: DEPRESSIVE SYMPTOM
     Dosage: (, 1 in 1 D)
  2. ARIPIPRAZOLE [Suspect]
     Indication: DEPRESSION
     Dosage: (,1 D)

REACTIONS (10)
  - Torticollis [None]
  - Anxiety [None]
  - Restlessness [None]
  - Movement disorder [None]
  - Tremor [None]
  - Drooling [None]
  - Parkinsonism [None]
  - Akathisia [None]
  - Drug interaction [None]
  - Extrapyramidal disorder [None]
